FAERS Safety Report 9059370 (Version 5)
Quarter: 2014Q1

REPORT INFORMATION
  Report Type: Report from Study
  Country: US (occurrence: US)
  Receive Date: 20130211
  Receipt Date: 20140106
  Transmission Date: 20141002
  Serious: Yes (Hospitalization, Other)
  Sender: FDA-Public Use
  Company Number: US-VERTEX PHARMACEUTICALS INC.-AE-2012-004187

PATIENT
  Age: 11 Year
  Sex: Female

DRUGS (1)
  1. VX-770 [Suspect]
     Indication: CYSTIC FIBROSIS
     Dosage: 150 MG, BID
     Route: 048
     Dates: start: 20120303

REACTIONS (9)
  - Pneumonia mycoplasmal [Unknown]
  - Convulsion [Unknown]
  - Infective pulmonary exacerbation of cystic fibrosis [Unknown]
  - Influenza [Recovered/Resolved]
  - Sinusitis [Unknown]
  - Skin papilloma [Unknown]
  - Pyrexia [Not Recovered/Not Resolved]
  - Blood immunoglobulin M increased [Unknown]
  - Headache [Not Recovered/Not Resolved]
